FAERS Safety Report 14998415 (Version 1)
Quarter: 2018Q2

REPORT INFORMATION
  Report Type: Spontaneous
  Country: DE (occurrence: DE)
  Receive Date: 20180611
  Receipt Date: 20180611
  Transmission Date: 20180711
  Serious: Yes (Hospitalization)
  Sender: FDA-Public Use
  Company Number: DE-TEVA-2018-DE-904018

PATIENT
  Age: 89 Year
  Sex: Female
  Weight: 63 kg

DRUGS (11)
  1. DOXYCYCLINE. [Suspect]
     Active Substance: DOXYCYCLINE
     Dosage: 200 MILLIGRAM DAILY;
     Route: 048
  2. ENALAPRIL [Concomitant]
     Active Substance: ENALAPRIL
     Dosage: 0.5-0-0-0
     Route: 048
  3. PROTHIPENDYL [Concomitant]
     Active Substance: PROTHIPENDYL
     Dosage: 80 MILLIGRAM DAILY;
     Route: 048
  4. PRAVASTATIN. [Concomitant]
     Active Substance: PRAVASTATIN
     Dosage: 40 MILLIGRAM DAILY;
     Route: 048
  5. AMPICILLIN [Concomitant]
     Active Substance: AMPICILLIN
     Dosage: 750 MILLIGRAM DAILY;
     Route: 048
  6. TORASEMID [Concomitant]
     Active Substance: TORSEMIDE
     Dosage: 5 MILLIGRAM DAILY;
     Route: 048
  7. PHENPROCOUMON [Suspect]
     Active Substance: PHENPROCOUMON
     Dosage: NACH INR
     Route: 065
  8. HYDROCHLOROTHIAZID [Concomitant]
     Active Substance: HYDROCHLOROTHIAZIDE
     Dosage: 0.5-0-0-0
     Route: 048
  9. OMEPRAZOL [Concomitant]
     Active Substance: OMEPRAZOLE
     Dosage: 20 MILLIGRAM DAILY;
     Route: 048
  10. METAMIZOLE [Concomitant]
     Active Substance: METAMIZOLE
     Dosage: 2000 MILLIGRAM DAILY;
     Route: 048
  11. OXYCODONE [Concomitant]
     Active Substance: OXYCODONE
     Route: 048

REACTIONS (4)
  - Drug prescribing error [Unknown]
  - Acute coronary syndrome [Unknown]
  - Dyspnoea [Unknown]
  - General physical health deterioration [Unknown]
